FAERS Safety Report 17947189 (Version 3)
Quarter: 2021Q4

REPORT INFORMATION
  Report Type: Report from Study
  Country: US (occurrence: None)
  Receive Date: 20200625
  Receipt Date: 20211218
  Transmission Date: 20220303
  Serious: Yes (Other)
  Sender: FDA-Public Use
  Company Number: US-ROCHE-2630619

PATIENT
  Age: 4 Year
  Sex: Male
  Weight: 15.6 kg

DRUGS (35)
  1. OMALIZUMAB [Suspect]
     Active Substance: OMALIZUMAB
     Indication: Asthma
     Route: 065
     Dates: start: 20190530
  2. VENTOLIN [Concomitant]
     Active Substance: ALBUTEROL SULFATE
  3. CETIRIZINE [Concomitant]
     Active Substance: CETIRIZINE HYDROCHLORIDE
     Dates: start: 20210311, end: 20210327
  4. CETIRIZINE [Concomitant]
     Active Substance: CETIRIZINE HYDROCHLORIDE
     Dates: start: 20200407
  5. HYDROCORTISONE [Concomitant]
     Active Substance: HYDROCORTISONE
  6. FLUTICASONE [Concomitant]
     Active Substance: FLUTICASONE
     Dosage: 2 PUFFS BID
     Dates: start: 20210401
  7. FLUTICASONE [Concomitant]
     Active Substance: FLUTICASONE
     Dosage: 1 PUFF
     Dates: start: 20210304, end: 20210401
  8. ACETAMINOPHEN [Concomitant]
     Active Substance: ACETAMINOPHEN
     Dates: start: 20211003, end: 20211003
  9. ACETAMINOPHEN [Concomitant]
     Active Substance: ACETAMINOPHEN
     Dates: start: 20210729, end: 20210729
  10. ACETAMINOPHEN [Concomitant]
     Active Substance: ACETAMINOPHEN
     Dates: start: 20210719, end: 20210719
  11. ACETAMINOPHEN [Concomitant]
     Active Substance: ACETAMINOPHEN
     Dates: start: 20210504, end: 20210504
  12. ACETAMINOPHEN [Concomitant]
     Active Substance: ACETAMINOPHEN
     Dates: start: 20200801, end: 20200801
  13. DIPHENHYDRAMINE [Concomitant]
     Active Substance: DIPHENHYDRAMINE
     Dates: start: 20210923, end: 20210923
  14. DIPHENHYDRAMINE [Concomitant]
     Active Substance: DIPHENHYDRAMINE
     Dates: start: 20210914, end: 20210914
  15. DIPHENHYDRAMINE [Concomitant]
     Active Substance: DIPHENHYDRAMINE
     Dates: start: 20210909, end: 20210909
  16. DIPHENHYDRAMINE [Concomitant]
     Active Substance: DIPHENHYDRAMINE
     Dates: start: 20210701, end: 20210701
  17. DIPHENHYDRAMINE [Concomitant]
     Active Substance: DIPHENHYDRAMINE
     Dates: start: 20210607, end: 20210607
  18. DIPHENHYDRAMINE [Concomitant]
     Active Substance: DIPHENHYDRAMINE
     Dates: start: 20210330, end: 20210330
  19. DIPHENHYDRAMINE [Concomitant]
     Active Substance: DIPHENHYDRAMINE
     Dates: start: 20210311, end: 20210311
  20. DIPHENHYDRAMINE [Concomitant]
     Active Substance: DIPHENHYDRAMINE
     Dates: start: 20200814, end: 20200814
  21. DIPHENHYDRAMINE [Concomitant]
     Active Substance: DIPHENHYDRAMINE
     Dates: start: 20200704, end: 20200704
  22. DIPHENHYDRAMINE [Concomitant]
     Active Substance: DIPHENHYDRAMINE
     Dates: start: 20200520, end: 20200520
  23. DIPHENHYDRAMINE [Concomitant]
     Active Substance: DIPHENHYDRAMINE
     Dates: start: 20200225, end: 20200225
  24. DIPHENHYDRAMINE [Concomitant]
     Active Substance: DIPHENHYDRAMINE
     Dates: start: 20200222, end: 20200222
  25. PHENYLEPHRINE [Concomitant]
     Active Substance: PHENYLEPHRINE HYDROCHLORIDE
     Dates: start: 20210803, end: 20210804
  26. GUAIFENESIN [Concomitant]
     Active Substance: GUAIFENESIN
     Dates: start: 20210803, end: 20210804
  27. DEXTROMETHORPHAN [Concomitant]
     Active Substance: DEXTROMETHORPHAN
     Dates: start: 20210803, end: 20210804
  28. IBUPROFEN [Concomitant]
     Active Substance: IBUPROFEN
     Dates: start: 20210322, end: 20210324
  29. SIMETHICONE (DIMETHICONE) [Concomitant]
     Active Substance: DIMETHICONE
     Dates: start: 20200820, end: 20200820
  30. METHYLPREDNISOLONE [Concomitant]
     Active Substance: METHYLPREDNISOLONE
     Dates: start: 20200520, end: 20200520
  31. EPINEPHRINE [Concomitant]
     Active Substance: EPINEPHRINE
     Dates: start: 20200520, end: 20200520
  32. BUDESONIDE [Concomitant]
     Active Substance: BUDESONIDE
     Dates: start: 20200407, end: 20200407
  33. BUDESONIDE [Concomitant]
     Active Substance: BUDESONIDE
     Dates: start: 20200224
  34. ONDANSETRON [Concomitant]
     Active Substance: ONDANSETRON
     Dates: start: 20200224, end: 20200224
  35. MEPERIDINE [Concomitant]
     Active Substance: MEPERIDINE
     Dates: start: 20200224, end: 20200224

REACTIONS (1)
  - Anaphylactic reaction [Recovered/Resolved]

NARRATIVE: CASE EVENT DATE: 20200520
